FAERS Safety Report 16133933 (Version 2)
Quarter: 2019Q2

REPORT INFORMATION
  Report Type: Report from Study
  Country: JP (occurrence: JP)
  Receive Date: 20190329
  Receipt Date: 20190516
  Transmission Date: 20190711
  Serious: Yes (Other)
  Sender: FDA-Public Use
  Company Number: JP-ACTELION-A-CH2019-188156

PATIENT
  Age: 44 Year
  Sex: Female

DRUGS (12)
  1. ADEMPAS [Suspect]
     Active Substance: RIOCIGUAT
     Indication: PULMONARY HYPERTENSION
     Dosage: 2.5 MG, TID
     Route: 048
     Dates: start: 20180907, end: 20180920
  2. BAYASPIRIN [Concomitant]
     Active Substance: ASPIRIN
  3. OMEPRAL [Concomitant]
     Active Substance: OMEPRAZOLE
  4. FRANCETIN T [Concomitant]
  5. LUPRAC [Concomitant]
     Active Substance: TORSEMIDE
  6. MAGNESIUM OXIDE. [Concomitant]
     Active Substance: MAGNESIUM OXIDE
  7. OPSUMIT [Suspect]
     Active Substance: MACITENTAN
     Indication: PULMONARY HYPERTENSION
     Dosage: 10 MG, QD
     Route: 048
     Dates: start: 20180907
  8. ADEMPAS [Suspect]
     Active Substance: RIOCIGUAT
     Dosage: 2 MG, TID
     Route: 048
     Dates: start: 20180921
  9. PLAVIX [Concomitant]
     Active Substance: CLOPIDOGREL BISULFATE
  10. AMLODIN [Concomitant]
     Active Substance: AMLODIPINE BESYLATE
  11. BERAPROST NA [Concomitant]
     Active Substance: BERAPROST SODIUM
  12. OXYGEN. [Concomitant]
     Active Substance: OXYGEN

REACTIONS (4)
  - Transfusion [Unknown]
  - Iron deficiency anaemia [Recovering/Resolving]
  - Genital haemorrhage [Recovered/Resolved]
  - Haemoptysis [Recovering/Resolving]

NARRATIVE: CASE EVENT DATE: 20180921
